FAERS Safety Report 6842971-X (Version None)
Quarter: 2010Q3

REPORT INFORMATION
  Report Type: 
  Country: None (occurrence: None)
  Receive Date: 20100714
  Receipt Date: 20070808
  Transmission Date: 20110219
  Serious: No
  Sender: FDA-Public Use
  Company Number: US-PFIZER INC-2007066957

PATIENT
  Age: 61 Year
  Sex: Male
  Weight: 72.727 kg

DRUGS (4)
  1. CHANTIX [Suspect]
     Indication: SMOKING CESSATION THERAPY
     Dates: start: 20070731, end: 20070801
  2. ACTOS [Concomitant]
  3. VALSARTAN [Concomitant]
  4. LITHIUM [Concomitant]

REACTIONS (5)
  - ABDOMINAL DISCOMFORT [None]
  - ASTHENIA [None]
  - DECREASED APPETITE [None]
  - GASTRIC DISORDER [None]
  - NAUSEA [None]
